FAERS Safety Report 11516533 (Version 1)
Quarter: 2015Q3

REPORT INFORMATION
  Report Type: Spontaneous
  Country: US (occurrence: None)
  Receive Date: 20150915
  Receipt Date: 20150915
  Transmission Date: 20151125
  Serious: No
  Sender: FDA-Public Use
  Company Number: 1210513-2015-00156

PATIENT
  Age: 72 Year
  Sex: Female

DRUGS (1)
  1. REXALL ATHLETES FOOT [Suspect]
     Active Substance: CLOTRIMAZOLE
     Indication: ANTIFUNGAL TREATMENT
     Dosage: 2X/DAY, TOPICAL 060
     Route: 061
     Dates: start: 20150815, end: 20150818

REACTIONS (1)
  - Burning sensation [None]

NARRATIVE: CASE EVENT DATE: 20150819
